FAERS Safety Report 13817176 (Version 1)
Quarter: 2017Q3

REPORT INFORMATION
  Report Type: Report from Study
  Country: FR (occurrence: FR)
  Receive Date: 20170731
  Receipt Date: 20170731
  Transmission Date: 20171127
  Serious: Yes (Other)
  Sender: FDA-Public Use
  Company Number: FR-MYLANLABS-2017M1045932

PATIENT

DRUGS (2)
  1. MAGNESIUM [Suspect]
     Active Substance: MAGNESIUM
     Dosage: CONTINUOUS INFUSION- 1G PER HOUR USING A SYRINGE PUMP
     Route: 041
  2. MAGNESIUM [Suspect]
     Active Substance: MAGNESIUM
     Indication: PRODUCT USED FOR UNKNOWN INDICATION
     Dosage: LOADING DOSE - 4G OVER 30 MINUTES
     Route: 041

REACTIONS (4)
  - Altered state of consciousness [Unknown]
  - Hypotension [Unknown]
  - Maternal exposure during pregnancy [Unknown]
  - Respiratory rate decreased [Unknown]
